FAERS Safety Report 6108235-7 (Version None)
Quarter: 2009Q1

REPORT INFORMATION
  Report Type: 
  Country: None (occurrence: None)
  Receive Date: 20090303
  Receipt Date: 20090218
  Transmission Date: 20090719
  Serious: Yes (Hospitalization, Other)
  Sender: FDA-Public Use
  Company Number: 56905

PATIENT
  Age: 55 Year
  Sex: Male

DRUGS (1)
  1. ADRIAMYCIN PFS [Suspect]
     Indication: NON-HODGKIN'S LYMPHOMA

REACTIONS (8)
  - ATAXIA [None]
  - DYSARTHRIA [None]
  - DYSPHAGIA [None]
  - LOCKED-IN SYNDROME [None]
  - MALNUTRITION [None]
  - PNEUMONIA [None]
  - PROGRESSIVE MULTIFOCAL LEUKOENCEPHALOPATHY [None]
  - QUADRIPARESIS [None]
